FAERS Safety Report 19771867 (Version 2)
Quarter: 2021Q3

REPORT INFORMATION
  Report Type: Spontaneous
  Country: FR (occurrence: FR)
  Receive Date: 20210831
  Receipt Date: 20210831
  Transmission Date: 20211014
  Serious: Yes (Hospitalization)
  Sender: FDA-Public Use
  Company Number: FR-PFIZER INC-202101054894

PATIENT
  Age: 47 Year
  Sex: Male
  Weight: 92 kg

DRUGS (18)
  1. PREDNISONE. [Suspect]
     Active Substance: PREDNISONE
     Indication: HODGKIN^S DISEASE
     Dosage: 80MG 1X/DAY
     Route: 048
     Dates: start: 20210623, end: 20210628
  2. METHYLPREDNISOLONE. [Suspect]
     Active Substance: METHYLPREDNISOLONE
     Indication: HODGKIN^S DISEASE
     Dosage: 80MG 1X/DAY, ON DAY 1
     Route: 041
     Dates: start: 20210622, end: 20210622
  3. ENDOXAN [CYCLOPHOSPHAMIDE] [Suspect]
     Active Substance: CYCLOPHOSPHAMIDE
     Dosage: 2500MG
     Route: 041
     Dates: start: 20210713, end: 20210713
  4. VINCRISTINE SULFATE. [Suspect]
     Active Substance: VINCRISTINE SULFATE
     Indication: HODGKIN^S DISEASE
     Dosage: 2MG 1X/DAY, ON DAY 8
     Route: 041
     Dates: start: 20210629, end: 20210629
  5. PROCARBAZINE [Suspect]
     Active Substance: PROCARBAZINE
     Dosage: 200MG 1X/DAY
     Route: 048
     Dates: start: 20210714, end: 20210720
  6. ETOPOSIDE. [Suspect]
     Active Substance: ETOPOSIDE
     Dosage: 200MG 2X/DAY ON DAY 2 AND DAY 3
     Route: 048
     Dates: start: 20210714, end: 20210715
  7. ENDOXAN [CYCLOPHOSPHAMIDE] [Suspect]
     Active Substance: CYCLOPHOSPHAMIDE
     Indication: HODGKIN^S DISEASE
     Dosage: 2500MG
     Route: 041
     Dates: start: 20210622, end: 20210622
  8. COMIRNATY [Suspect]
     Active Substance: TOZINAMERAN
     Indication: COVID-19 IMMUNISATION
     Dosage: DOSE 2, SINGLE
     Route: 030
     Dates: start: 20210614, end: 20210614
  9. DOXORUBICINE [DOXORUBICIN HYDROCHLORIDE] [Suspect]
     Active Substance: DOXORUBICIN HYDROCHLORIDE
     Indication: HODGKIN^S DISEASE
     Dosage: 70MG
     Route: 041
     Dates: start: 20210622, end: 20210622
  10. DOXORUBICINE [DOXORUBICIN HYDROCHLORIDE] [Suspect]
     Active Substance: DOXORUBICIN HYDROCHLORIDE
     Dosage: 70MG  DAY 1
     Route: 041
     Dates: start: 20210713, end: 20210713
  11. PREDNISONE. [Suspect]
     Active Substance: PREDNISONE
     Dosage: 80 MG, DAILY,  ON DAY 2, DAY 3, DAY 4, DAY 5, DAY 6, DAY 7
  12. ETOPOSIDE. [Suspect]
     Active Substance: ETOPOSIDE
     Dosage: 400MG 1X/DAY ON DAY 1
     Route: 041
     Dates: start: 20210713, end: 20210713
  13. METHYLPREDNISOLONE. [Suspect]
     Active Substance: METHYLPREDNISOLONE
     Dosage: 80MG 1X/DAY, ON DAY 1
     Route: 041
     Dates: start: 20210713, end: 20210713
  14. PREDNISONE. [Suspect]
     Active Substance: PREDNISONE
     Dosage: 80MG 1X/DAY
     Route: 048
     Dates: start: 20210714, end: 20210719
  15. ETOPOSIDE. [Suspect]
     Active Substance: ETOPOSIDE
     Dosage: 200MG 2X/DAY ON DAY 2 AND DAY 3
     Route: 048
     Dates: start: 20210623, end: 20210624
  16. BLEOMYCIN [Suspect]
     Active Substance: BLEOMYCIN SULFATE
     Indication: HODGKIN^S DISEASE
     Dosage: 20MG 1X DAY, ON DAY 8
     Route: 041
     Dates: start: 20210629, end: 20210629
  17. PROCARBAZINE [Suspect]
     Active Substance: PROCARBAZINE
     Indication: HODGKIN^S DISEASE
     Dosage: 200MG 1X/DAY
     Route: 048
     Dates: start: 20210623, end: 20210629
  18. ETOPOSIDE. [Suspect]
     Active Substance: ETOPOSIDE
     Indication: HODGKIN^S DISEASE
     Dosage: 400 MG 1X/DAY ON DAY 1
     Route: 041
     Dates: start: 20210622, end: 20210622

REACTIONS (22)
  - Myocardial infarction [Recovering/Resolving]
  - Coronary artery thrombosis [Recovering/Resolving]
  - Blood pressure diastolic increased [Recovering/Resolving]
  - Gamma-glutamyltransferase increased [Recovering/Resolving]
  - Syncope [Recovering/Resolving]
  - Loss of consciousness [Recovering/Resolving]
  - Amnesia [Recovering/Resolving]
  - Activated partial thromboplastin time shortened [Recovering/Resolving]
  - Malaise [Recovering/Resolving]
  - Pain [Recovering/Resolving]
  - Troponin abnormal [Recovering/Resolving]
  - Haemoglobin decreased [Recovering/Resolving]
  - Arterial injury [Recovering/Resolving]
  - Chest pain [Recovering/Resolving]
  - Neutropenia [Recovering/Resolving]
  - Acute coronary syndrome [Recovering/Resolving]
  - Hypokinesia [Recovering/Resolving]
  - Pericarditis [Recovering/Resolving]
  - Aspartate aminotransferase increased [Recovering/Resolving]
  - Blood albumin decreased [Recovering/Resolving]
  - Glycosylated haemoglobin increased [Recovering/Resolving]
  - Muscular weakness [Recovering/Resolving]

NARRATIVE: CASE EVENT DATE: 202107
